FAERS Safety Report 21621925 (Version 4)
Quarter: 2022Q4

REPORT INFORMATION
  Report Type: Spontaneous
  Country: US (occurrence: US)
  Receive Date: 20221121
  Receipt Date: 20221216
  Transmission Date: 20230112
  Serious: No
  Sender: FDA-Public Use
  Company Number: US-PFIZER INC-202201293600

PATIENT
  Age: 13 Year
  Sex: Female
  Weight: 36.281 kg

DRUGS (3)
  1. GENOTROPIN [Suspect]
     Active Substance: SOMATROPIN
     Indication: Growth disorder
     Dosage: 1.8 MG
     Dates: end: 20221108
  2. GENOTROPIN [Suspect]
     Active Substance: SOMATROPIN
     Dosage: 2 MG
  3. ESTRADIOL [Concomitant]
     Active Substance: ESTRADIOL
     Indication: Pubertal disorder
     Dosage: 0.025 MG, WEEKLY

REACTIONS (4)
  - Expired device used [Unknown]
  - Drug dose omission by device [Unknown]
  - Device information output issue [Unknown]
  - Device power source issue [Unknown]
